FAERS Safety Report 24900754 (Version 1)
Quarter: 2025Q1

REPORT INFORMATION
  Report Type: Report from Study
  Country: US (occurrence: US)
  Receive Date: 20250129
  Receipt Date: 20250129
  Transmission Date: 20250408
  Serious: Yes (Other)
  Sender: ALEXION PHARMACEUTICALS
  Company Number: US-AstraZeneca-CH-00792990A

PATIENT
  Age: 79 Year
  Weight: 88.435 kg

DRUGS (1)
  1. OSIMERTINIB [Suspect]
     Active Substance: OSIMERTINIB
     Indication: Lung neoplasm malignant
     Dosage: 40 MILLIGRAM, QD

REACTIONS (3)
  - Nephrolithiasis [Unknown]
  - Fungal skin infection [Not Recovered/Not Resolved]
  - Rash pruritic [Not Recovered/Not Resolved]
